FAERS Safety Report 5418993-2 (Version None)
Quarter: 2007Q3

REPORT INFORMATION
  Report Type: 
  Country: None (occurrence: None)
  Receive Date: 20070817
  Receipt Date: 20070809
  Transmission Date: 20080115
  Serious: Yes (Other)
  Sender: FDA-Public Use
  Company Number: GB-PFIZER INC-2007066524

PATIENT
  Age: 17 Year
  Sex: Male

DRUGS (1)
  1. LUSTRAL [Suspect]
     Indication: OBSESSIVE-COMPULSIVE DISORDER
     Dosage: DAILY DOSE:50MG

REACTIONS (1)
  - NARCOLEPSY [None]
